FAERS Safety Report 6389306-7 (Version None)
Quarter: 2009Q4

REPORT INFORMATION
  Report Type: 
  Country: None (occurrence: None)
  Receive Date: 20091006
  Receipt Date: 20090930
  Transmission Date: 20100525
  Serious: Yes (Hospitalization)
  Sender: FDA-Public Use
  Company Number: CHPA2009CA19506

PATIENT
  Sex: Female

DRUGS (1)
  1. GAS-X EXTRA STR CHEWABLE TABLETS UNKNOWN (NCH) [Suspect]
     Indication: FLATULENCE
     Dosage: 2 TABLETS. ONCE/SINGLE
     Route: 048
     Dates: start: 20090801, end: 20090801

REACTIONS (8)
  - BLOOD URINE PRESENT [None]
  - CYSTITIS [None]
  - HEADACHE [None]
  - KIDNEY INFECTION [None]
  - MICTURITION URGENCY [None]
  - PRURITUS GENERALISED [None]
  - RASH GENERALISED [None]
  - RENAL PAIN [None]
